FAERS Safety Report 8695145 (Version 2)
Quarter: 2013Q4

REPORT INFORMATION
  Report Type: Spontaneous
  Country: US (occurrence: US)
  Receive Date: 20120731
  Receipt Date: 20131108
  Transmission Date: 20140711
  Serious: Yes (Hospitalization, Other)
  Sender: FDA-Public Use
  Company Number: US-009507513-1207USA009724

PATIENT
  Age: 62 Year
  Sex: Female

DRUGS (16)
  1. ZOCOR [Suspect]
     Dosage: 40 MG, UNK
     Route: 048
  2. AMITRIPTYLINE HYDROCHLORIDE [Suspect]
     Dosage: 100 MG, UNK
  3. FLUOXETINE [Suspect]
     Dosage: 40 MG, UNK
     Route: 048
  4. LORAZEPAM [Suspect]
     Dosage: 2 MG, EVERY FEW HOURS
     Route: 048
  5. L-THYROXIN [Suspect]
     Dosage: 150 MG, UNK
  6. HYDROMORPHONE [Suspect]
     Dosage: 20 MG, BID
     Route: 048
  7. DIAZEPAM [Suspect]
     Dosage: 5 MG, BID
  8. ALPRAZOLAM [Suspect]
     Dosage: 0.5 MG, UNK
  9. GABAPENTIN [Suspect]
     Dosage: 900 MG, OVER 3 DAYS UP TO 900MG PER DAY
  10. ANASTROZOLE [Concomitant]
  11. METOPROLOL [Concomitant]
  12. ASPIRIN [Concomitant]
  13. DIPYRONE MAGNESIUM [Concomitant]
  14. FENTANYL [Concomitant]
  15. NITROGLYCERIN [Concomitant]
  16. POLYETHYLENE GLYCOL [Concomitant]

REACTIONS (13)
  - Hallucination, visual [Unknown]
  - Agitation [Unknown]
  - Blood culture positive [Unknown]
  - Cognitive disorder [Unknown]
  - Pain in extremity [Unknown]
  - Pneumonia [Unknown]
  - Sepsis [Unknown]
  - Hypotension [Unknown]
  - Arthralgia [Unknown]
  - Hemiparesis [Unknown]
  - Thrombocytopenia [Unknown]
  - Delirium [Unknown]
  - Renal failure [Unknown]
